FAERS Safety Report 23261194 (Version 1)
Quarter: 2023Q4

REPORT INFORMATION
  Report Type: Spontaneous
  Country: US (occurrence: US)
  Receive Date: 20231205
  Receipt Date: 20231205
  Transmission Date: 20240109
  Serious: No
  Sender: FDA-Public Use
  Company Number: US-CELLTRION INC.-2022US022102

PATIENT

DRUGS (5)
  1. TRUXIMA [Suspect]
     Active Substance: RITUXIMAB-ABBS
     Indication: Rheumatoid arthritis
     Dosage: UNKNOWN DOSE EVERY 6 MONTHS [LAST TREATMENT IN MAY-2022]
     Route: 042
     Dates: start: 202205
  2. LEFLUNOMIDE [Concomitant]
     Active Substance: LEFLUNOMIDE
     Dosage: 10 MG, ONCE DAILY
  3. FOLIC ACID [Concomitant]
     Active Substance: FOLIC ACID
  4. VITAMIN C [Concomitant]
     Active Substance: ASCORBIC ACID
  5. ALENDRONATE SODIUM [Concomitant]
     Active Substance: ALENDRONATE SODIUM

REACTIONS (2)
  - Iron deficiency [Recovering/Resolving]
  - Blood iron abnormal [Recovering/Resolving]

NARRATIVE: CASE EVENT DATE: 20221101
